FAERS Safety Report 8928906 (Version 1)
Quarter: 2012Q4

REPORT INFORMATION
  Report Type: 
  Country: FR (occurrence: FR)
  Receive Date: 20121128
  Receipt Date: 20121128
  Transmission Date: 20130627
  Serious: Yes (Hospitalization)
  Sender: FDA-Public Use
  Company Number: FR-BRISTOL-MYERS SQUIBB COMPANY-17141359

PATIENT
  Age: 70 Year
  Sex: Male

DRUGS (3)
  1. COUMADIN TABS 2 MG [Suspect]
     Indication: ATRIAL FIBRILLATION
     Dosage: 2 mg per day for 2 days and 2.5mg per day for the following 2 days as taken alternately
     Route: 048
     Dates: start: 200801
  2. ZYLORIC [Concomitant]
     Indication: GOUT
     Route: 048
     Dates: start: 2008
  3. ISOPTINE LP [Concomitant]
     Route: 048
     Dates: start: 200901

REACTIONS (2)
  - Fall [Not Recovered/Not Resolved]
  - Muscle haemorrhage [Not Recovered/Not Resolved]
